FAERS Safety Report 12902426 (Version 1)
Quarter: 2016Q4

REPORT INFORMATION
  Report Type: Spontaneous
  Country: US (occurrence: US)
  Receive Date: 20161102
  Receipt Date: 20161102
  Transmission Date: 20170207
  Serious: Yes (Death, Hospitalization)
  Sender: FDA-Public Use
  Company Number: US-GE HEALTHCARE MEDICAL DIAGNOSTICS-OMPQ-PR-1610S-1989

PATIENT
  Age: 86 Year
  Sex: Male

DRUGS (3)
  1. OMNIPAQUE [Suspect]
     Active Substance: IOHEXOL
     Indication: DIAGNOSTIC PROCEDURE
  2. OMNIPAQUE [Suspect]
     Active Substance: IOHEXOL
     Indication: CHEST PAIN
     Dosage: DOSE NOT REPORTED
     Route: 013
     Dates: start: 20161008, end: 20161008
  3. OMNIPAQUE [Suspect]
     Active Substance: IOHEXOL
     Indication: ACUTE MYOCARDIAL INFARCTION

REACTIONS (3)
  - Abdominal pain [Unknown]
  - Contrast media reaction [Fatal]
  - Arthralgia [Unknown]

NARRATIVE: CASE EVENT DATE: 20161008
